FAERS Safety Report 16395576 (Version 2)
Quarter: 2019Q4

REPORT INFORMATION
  Report Type: Report from Study
  Country: US (occurrence: US)
  Receive Date: 20190605
  Receipt Date: 20191210
  Transmission Date: 20200122
  Serious: Yes (Hospitalization)
  Sender: FDA-Public Use
  Company Number: US-ACTELION-A-NJ2018-181951

PATIENT
  Sex: Female
  Weight: 69.39 kg

DRUGS (3)
  1. VELETRI [Suspect]
     Active Substance: EPOPROSTENOL
     Indication: PULMONARY ARTERIAL HYPERTENSION
     Dosage: 52 NG/KG, PER MIN
     Route: 042
  2. LETAIRIS [Concomitant]
     Active Substance: AMBRISENTAN
  3. VELETRI [Suspect]
     Active Substance: EPOPROSTENOL
     Dosage: 52.5 NG/KG, PER MIN
     Route: 042

REACTIONS (18)
  - Pneumonia [Unknown]
  - Unevaluable event [Unknown]
  - Pain in jaw [Not Recovered/Not Resolved]
  - Oxygen consumption [Unknown]
  - Pain in extremity [Not Recovered/Not Resolved]
  - Chest pain [Unknown]
  - Joint swelling [Unknown]
  - Dyspnoea [Recovering/Resolving]
  - Peripheral swelling [Unknown]
  - Dyspnoea exertional [Unknown]
  - Pulmonary arterial hypertension [Unknown]
  - Neck pain [Unknown]
  - Flushing [Not Recovered/Not Resolved]
  - Bronchitis [Unknown]
  - Respiratory failure [Unknown]
  - Tooth fracture [Unknown]
  - Back pain [Unknown]
  - Headache [Not Recovered/Not Resolved]
